FAERS Safety Report 21380161 (Version 1)
Quarter: 2022Q3

REPORT INFORMATION
  Report Type: Spontaneous
  Country: US (occurrence: None)
  Receive Date: 20220923
  Receipt Date: 20220923
  Transmission Date: 20221027
  Serious: Yes (Hospitalization)
  Sender: FDA-Public Use
  Company Number: None

PATIENT
  Age: 54 Year
  Sex: Male

DRUGS (2)
  1. LISINOPRIL [Suspect]
     Active Substance: LISINOPRIL
     Indication: Hypertension
     Dosage: 1/2 TAB BID PO? ?
     Route: 048
     Dates: start: 20220407, end: 20220708
  2. FUROSEMIDE [Suspect]
     Active Substance: FUROSEMIDE
     Indication: Hypertension
     Dosage: 1 TAB EVERY DAY PO
     Route: 048
     Dates: start: 20220110, end: 20220708

REACTIONS (3)
  - Dizziness [None]
  - Orthostatic hypotension [None]
  - Therapy interrupted [None]

NARRATIVE: CASE EVENT DATE: 20220705
